FAERS Safety Report 10266334 (Version 1)
Quarter: 2014Q2

REPORT INFORMATION
  Report Type: Spontaneous
  Country: US (occurrence: US)
  Receive Date: 20140627
  Receipt Date: 20140627
  Transmission Date: 20141212
  Serious: No
  Sender: FDA-Public Use
  Company Number: US-GILEAD-2014-0106849

PATIENT
  Age: 71 Year
  Sex: Female

DRUGS (34)
  1. LETAIRIS [Suspect]
     Indication: PULMONARY HYPERTENSION
     Dosage: 5 MG, QD
     Route: 065
     Dates: start: 20140429
  2. XANAX [Concomitant]
  3. SENNA                              /00571901/ [Concomitant]
  4. MILK OF MAGNESIA [Concomitant]
  5. BISACODYL [Concomitant]
  6. TUSSICAPS [Concomitant]
  7. HYDROXYZINE [Concomitant]
  8. ALBUTEROL SULFATE [Concomitant]
  9. LOPERAMIDE [Concomitant]
  10. PHENERGAN                          /00033002/ [Concomitant]
  11. ONDANSETRON [Concomitant]
  12. LEVSIN [Concomitant]
  13. COMBIVENT [Concomitant]
  14. PERCOCET                           /00867901/ [Concomitant]
  15. ABILIFY [Concomitant]
  16. LEXAPRO [Concomitant]
  17. COLACE [Concomitant]
  18. MIRALAX                            /00754501/ [Concomitant]
  19. DIFLUCAN [Concomitant]
  20. COZAAR [Concomitant]
  21. CALCIUM CARBONATE [Concomitant]
  22. DICYCLOMINE                        /00068602/ [Concomitant]
  23. VITAMIN B-12 [Concomitant]
  24. ADVAIR [Concomitant]
  25. DEXILANT [Concomitant]
  26. CYANOCOBALAMIN [Concomitant]
  27. CARAFATE [Concomitant]
  28. MULTIVITAMIN                       /07504101/ [Concomitant]
  29. ZOCOR [Concomitant]
  30. VITAMIN D NOS [Concomitant]
  31. PENTASA [Concomitant]
  32. OXYCONTIN [Concomitant]
  33. OXYBUTYNIN [Concomitant]
  34. METFORMIN [Concomitant]

REACTIONS (1)
  - Oedema peripheral [Not Recovered/Not Resolved]
